FAERS Safety Report 20032525 (Version 5)
Quarter: 2022Q1

REPORT INFORMATION
  Report Type: Spontaneous
  Country: US (occurrence: US)
  Receive Date: 20211103
  Receipt Date: 20220131
  Transmission Date: 20220424
  Serious: No
  Sender: FDA-Public Use
  Company Number: US-BEH-2021137659

PATIENT
  Age: 61 Year
  Sex: Female

DRUGS (12)
  1. HIZENTRA [Suspect]
     Active Substance: HUMAN IMMUNOGLOBULIN G
     Indication: Chronic inflammatory demyelinating polyradiculoneuropathy
     Dosage: 10 GRAM, BIW
     Route: 058
  2. HIZENTRA [Suspect]
     Active Substance: HUMAN IMMUNOGLOBULIN G
     Dosage: 10 GRAM, BIW
     Route: 058
  3. HIZENTRA [Suspect]
     Active Substance: HUMAN IMMUNOGLOBULIN G
     Dosage: 10 GRAM, BIW
     Route: 058
  4. HIZENTRA [Suspect]
     Active Substance: HUMAN IMMUNOGLOBULIN G
     Dosage: 10 GRAM, BIW
     Route: 058
  5. AZITHROMYCIN [Concomitant]
     Active Substance: AZITHROMYCIN
  6. LEVOTHYROXINE [Concomitant]
     Active Substance: LEVOTHYROXINE
  7. PREDNISONE [Concomitant]
     Active Substance: PREDNISONE
  8. PREGABALIN [Concomitant]
     Active Substance: PREGABALIN
  9. HYDROCODONE [Concomitant]
     Active Substance: HYDROCODONE
  10. VITAMIN B12 [Concomitant]
     Active Substance: CYANOCOBALAMIN
  11. AZATHIOPRINE [Concomitant]
     Active Substance: AZATHIOPRINE
  12. SYNTHROID [Concomitant]
     Active Substance: LEVOTHYROXINE SODIUM

REACTIONS (28)
  - Neuralgia [Not Recovered/Not Resolved]
  - Infusion site erythema [Not Recovered/Not Resolved]
  - Infusion site swelling [Not Recovered/Not Resolved]
  - Headache [Not Recovered/Not Resolved]
  - Infusion site erythema [Not Recovered/Not Resolved]
  - Infusion site swelling [Not Recovered/Not Resolved]
  - Infusion site urticaria [Not Recovered/Not Resolved]
  - Injection site erythema [Recovered/Resolved]
  - Injection site pruritus [Recovered/Resolved]
  - Injection site rash [Recovered/Resolved]
  - Swelling [Recovered/Resolved]
  - Recalled product administered [Recovered/Resolved]
  - Swelling [Recovered/Resolved]
  - Recalled product administered [Recovered/Resolved]
  - Infusion site pruritus [Unknown]
  - Infusion site mass [Unknown]
  - Infusion site pain [Unknown]
  - Infusion site erythema [Unknown]
  - Swelling [Unknown]
  - Hypersensitivity [Unknown]
  - Infusion site swelling [Unknown]
  - Tenderness [Unknown]
  - Swelling face [Unknown]
  - Peripheral swelling [Unknown]
  - Bone swelling [Unknown]
  - Bone pain [Unknown]
  - Infusion site pruritus [Unknown]
  - Infusion site swelling [Unknown]

NARRATIVE: CASE EVENT DATE: 20211126
